FAERS Safety Report 20660828 (Version 1)
Quarter: 2022Q1

REPORT INFORMATION
  Report Type: Spontaneous
  Country: ES (occurrence: ES)
  Receive Date: 20220331
  Receipt Date: 20220331
  Transmission Date: 20220424
  Serious: Yes (Hospitalization)
  Sender: FDA-Public Use
  Company Number: None

PATIENT
  Age: 71 Year
  Sex: Female
  Weight: 50 kg

DRUGS (2)
  1. FULVESTRANT [Suspect]
     Active Substance: FULVESTRANT
     Indication: Breast cancer
     Dosage: FULVESTRANT TEVA 250 MG SOLUTION FOR INJECTION IN PRE-FILLED SYRINGE EFG, 1 PRE-FILLED SYRINGE OF 5
     Route: 030
     Dates: start: 20211124
  2. KISQALI [Suspect]
     Active Substance: RIBOCICLIB
     Indication: Breast cancer
     Dosage: 600 MILLIGRAM DAILY; 600 MG/24H, KISQALI 200 MG FILM-COATED TABLETS 63 TABLETS
     Route: 048
     Dates: start: 20211124

REACTIONS (3)
  - Anaemia [Recovered/Resolved]
  - Cardiac failure [Recovered/Resolved]
  - Thrombocytopenia [Recovered/Resolved]

NARRATIVE: CASE EVENT DATE: 20211216
